FAERS Safety Report 4778843-4 (Version None)
Quarter: 2005Q3

REPORT INFORMATION
  Report Type: 
  Country: None (occurrence: None)
  Receive Date: 20050926
  Receipt Date: 20050916
  Transmission Date: 20060218
  Serious: Yes (Other)
  Sender: FDA-Public Use
  Company Number: BR-JNJFOC-20050903357

PATIENT
  Age: 58 Year

DRUGS (1)
  1. TYLEX [Suspect]
     Indication: PAIN
     Route: 048

REACTIONS (4)
  - AMNESIA [None]
  - COORDINATION ABNORMAL [None]
  - HAEMORRHAGE INTRACRANIAL [None]
  - NYSTAGMUS [None]
